FAERS Safety Report 5675842-5 (Version None)
Quarter: 2008Q1

REPORT INFORMATION
  Report Type: 
  Country: None (occurrence: None)
  Receive Date: 20080318
  Receipt Date: 20080306
  Transmission Date: 20080703
  Serious: Yes (Other)
  Sender: FDA-Public Use
  Company Number: ABX72-08-0081

PATIENT
  Age: 71 Year
  Sex: Male
  Weight: 717 kg

DRUGS (10)
  1. ABRAXANE (ABRAXANE FOR INJECTABLE SUSPENSION (PACLITAXEL) [Suspect]
     Indication: SQUAMOUS CELL CARCINOMA
  2. CARBOPLATIN [Suspect]
     Indication: SQUAMOUS CELL CARCINOMA
     Dosage: (168 MG)
     Dates: start: 20071205
  3. ERBITUX [Suspect]
     Indication: SQUAMOUS CELL CARCINOMA
     Dosage: (470 MG)
     Dates: start: 20071129
  4. RADIATION THERAPY [Suspect]
     Indication: SQUAMOUS CELL CARCINOMA
     Dosage: (5 DAYS A WEEK X 7 WEEKS)
     Dates: start: 20071203
  5. ALKALOL (ALKALOL) [Concomitant]
  6. ATENOLOL [Concomitant]
  7. DIFLUCAN [Concomitant]
  8. HYDROCHLOROTHIAZIDE [Concomitant]
  9. KBL SOLUTION [Concomitant]
  10. ROXICET [Concomitant]

REACTIONS (1)
  - SIALOADENITIS [None]
